FAERS Safety Report 8373616-8 (Version None)
Quarter: 2012Q2

REPORT INFORMATION
  Report Type: 
  Country: None (occurrence: None)
  Receive Date: 20120521
  Receipt Date: 20120206
  Transmission Date: 20120825
  Serious: No
  Sender: FDA-Public Use
  Company Number: US-TEVA-321363USA

PATIENT
  Sex: Female
  Weight: 72.64 kg

DRUGS (10)
  1. NEURONTIN [Concomitant]
     Indication: NERVE INJURY
     Dosage: 1200 MILLIGRAM;
     Route: 048
  2. VALTREX [Concomitant]
     Indication: ANTIVIRAL TREATMENT
     Dosage: 1000 MILLIGRAM;
     Route: 048
  3. BAYER ASA [Concomitant]
     Indication: PROPHYLAXIS
     Dosage: 81 MILLIGRAM;
     Route: 048
  4. PRILOSEC [Concomitant]
     Indication: GASTROOESOPHAGEAL REFLUX DISEASE
     Dosage: 20 MILLIGRAM;
     Route: 048
  5. VERAPAMIL [Concomitant]
     Indication: HYPERTENSION
     Dosage: 240 MILLIGRAM;
     Route: 048
  6. SYNTHROID [Concomitant]
     Indication: HYPOTHYROIDISM
     Route: 048
  7. MULTI-VITAMINS [Concomitant]
  8. ULTRAM [Concomitant]
     Indication: PAIN
     Dosage: 50 MILLIGRAM;
     Route: 048
     Dates: start: 20090101
  9. TREANDA [Suspect]
     Indication: CHRONIC LYMPHOCYTIC LEUKAEMIA
     Route: 042
     Dates: start: 20120130
  10. SINGULAIR [Concomitant]
     Indication: ASTHMA
     Dosage: 10 MILLIGRAM;
     Route: 048

REACTIONS (7)
  - FATIGUE [None]
  - VOMITING [None]
  - WEIGHT DECREASED [None]
  - NAUSEA [None]
  - INSOMNIA [None]
  - DECREASED APPETITE [None]
  - MUSCULAR WEAKNESS [None]
